FAERS Safety Report 13291320 (Version 1)
Quarter: 2017Q1

REPORT INFORMATION
  Report Type: Spontaneous
  Country: US (occurrence: US)
  Receive Date: 20170302
  Receipt Date: 20170302
  Transmission Date: 20170428
  Serious: No
  Sender: FDA-Public Use
  Company Number: None

PATIENT

DRUGS (1)
  1. RECLAST [Suspect]
     Active Substance: ZOLEDRONIC ACID

REACTIONS (17)
  - Pyrexia [None]
  - Eye pain [None]
  - Fatigue [None]
  - Musculoskeletal chest pain [None]
  - Emotional distress [None]
  - Headache [None]
  - Hepatic enzyme increased [None]
  - Toothache [None]
  - Tachycardia [None]
  - Dehydration [None]
  - Bone pain [None]
  - Arthralgia [None]
  - Emotional disorder [None]
  - White blood cell count increased [None]
  - Photophobia [None]
  - Back pain [None]
  - Asthenia [None]
